FAERS Safety Report 15372353 (Version 1)
Quarter: 2018Q3

REPORT INFORMATION
  Report Type: Report from Study
  Country: US (occurrence: US)
  Receive Date: 20180911
  Receipt Date: 20180911
  Transmission Date: 20181010
  Serious: Yes (Other)
  Sender: FDA-Public Use
  Company Number: US-ACTELION-A-NJ2018-178726

PATIENT
  Age: 50 Year
  Sex: Female

DRUGS (2)
  1. SILDENAFIL. [Concomitant]
     Active Substance: SILDENAFIL
     Dosage: 20 MG, TID
     Dates: start: 20160622
  2. VENTAVIS [Suspect]
     Active Substance: ILOPROST
     Indication: PULMONARY ARTERIAL HYPERTENSION
     Dosage: 5 MCG, 6 TIMES QD
     Route: 055
     Dates: start: 20120426

REACTIONS (10)
  - Walking distance test abnormal [Unknown]
  - Atrial enlargement [Unknown]
  - Dyspnoea [Unknown]
  - Snoring [Unknown]
  - Systolic dysfunction [Unknown]
  - Oedema peripheral [Unknown]
  - Right ventricular enlargement [Unknown]
  - Pulmonary embolism [Unknown]
  - Chronic obstructive pulmonary disease [Unknown]
  - Cardiomegaly [Unknown]
